FAERS Safety Report 8463433-2 (Version None)
Quarter: 2012Q2

REPORT INFORMATION
  Report Type: 
  Country: None (occurrence: None)
  Receive Date: 20120625
  Receipt Date: 20120615
  Transmission Date: 20120825
  Serious: Yes (Hospitalization, Disabling, Other)
  Sender: FDA-Public Use
  Company Number: US-MERCK-1110USA04475

PATIENT
  Age: 51 Year
  Sex: Female
  Weight: 79 kg

DRUGS (3)
  1. FOSAMAX [Suspect]
     Indication: OSTEOPOROSIS
     Route: 048
     Dates: start: 20041001, end: 20050214
  2. ACTONEL [Suspect]
     Route: 065
  3. BONIVA [Suspect]
     Route: 065

REACTIONS (56)
  - EPILEPSY [None]
  - SINUSITIS [None]
  - FATIGUE [None]
  - TOOTH DISORDER [None]
  - MUSCULOSKELETAL PAIN [None]
  - OSTEONECROSIS OF JAW [None]
  - BRADYCARDIA [None]
  - BRUXISM [None]
  - DEPRESSION [None]
  - POLLAKIURIA [None]
  - OEDEMA PERIPHERAL [None]
  - NASAL SEPTUM DEVIATION [None]
  - BACK DISORDER [None]
  - BREATH ODOUR [None]
  - BONE DENSITY DECREASED [None]
  - LOW TURNOVER OSTEOPATHY [None]
  - ANXIETY [None]
  - POST PROCEDURAL HYPOTHYROIDISM [None]
  - SENSITIVITY OF TEETH [None]
  - RASH [None]
  - PEMPHIGUS [None]
  - URINARY TRACT INFECTION [None]
  - DYSGEUSIA [None]
  - CARDIAC FAILURE CONGESTIVE [None]
  - ACUTE SINUSITIS [None]
  - BLOOD GLUCOSE ABNORMAL [None]
  - EPISTAXIS [None]
  - DYSURIA [None]
  - PULPITIS DENTAL [None]
  - PERIODONTAL DISEASE [None]
  - LIVER FUNCTION TEST ABNORMAL [None]
  - INTERVERTEBRAL DISC PROTRUSION [None]
  - CALCIUM METABOLISM DISORDER [None]
  - PEMPHIGOID [None]
  - ARTHROPATHY [None]
  - ADVERSE DRUG REACTION [None]
  - ADVERSE EVENT [None]
  - DENTAL PLAQUE [None]
  - ENDOCRINE TEST ABNORMAL [None]
  - OSTEOARTHRITIS [None]
  - HERPES ZOSTER [None]
  - TOOTHACHE [None]
  - HYPERTROPHY OF TONGUE PAPILLAE [None]
  - CONVULSION [None]
  - HUMERUS FRACTURE [None]
  - DENTAL CARIES [None]
  - DRUG INEFFECTIVE [None]
  - MALAISE [None]
  - TONGUE HAEMORRHAGE [None]
  - MULTIPLE FRACTURES [None]
  - INSOMNIA [None]
  - PARANASAL SINUS MUCOSAL HYPERTROPHY [None]
  - TOOTH CROWDING [None]
  - SLEEP DISORDER [None]
  - ORAL LICHEN PLANUS [None]
  - NECK PAIN [None]
